FAERS Safety Report 9735298 (Version 1)
Quarter: 2013Q4

REPORT INFORMATION
  Report Type: Spontaneous
  Country: GB (occurrence: GB)
  Receive Date: 20131206
  Receipt Date: 20131206
  Transmission Date: 20140711
  Serious: Yes (Death, Other)
  Sender: FDA-Public Use
  Company Number: GB-TEVA-448708ISR

PATIENT
  Age: 53 Year
  Sex: Male

DRUGS (3)
  1. VINCRISTINE [Suspect]
     Indication: GLIOMA
     Route: 042
     Dates: start: 20130815
  2. PROCARBAZINE [Suspect]
     Indication: GLIOMA
     Route: 042
     Dates: start: 20130815
  3. LOMUSTINE [Suspect]
     Indication: GLIOMA
     Route: 042
     Dates: start: 20130815

REACTIONS (4)
  - Death [Fatal]
  - Jaundice [Not Recovered/Not Resolved]
  - Liver disorder [Not Recovered/Not Resolved]
  - Liver function test abnormal [Not Recovered/Not Resolved]
